FAERS Safety Report 24675061 (Version 2)
Quarter: 2024Q4

REPORT INFORMATION
  Report Type: Report from Study
  Country: CA (occurrence: CA)
  Receive Date: 20241128
  Receipt Date: 20241210
  Transmission Date: 20250114
  Serious: Yes (Other)
  Sender: ROCHE
  Company Number: CA-ROCHE-10000139953

PATIENT
  Sex: Male
  Weight: 59 kg

DRUGS (23)
  1. ACTEMRA [Suspect]
     Active Substance: TOCILIZUMAB
     Indication: Still^s disease
     Dosage: DRUG DOSE FIRST ADMINISTERED IS 240 MG MILLIGRAM(S)
     Route: 042
     Dates: start: 20110630, end: 20120413
  2. ACTEMRA [Suspect]
     Active Substance: TOCILIZUMAB
     Dosage: DRUG DOSE FIRST ADMINISTERED IS 250 MG MILLIGRAM(S)
     Route: 042
     Dates: start: 20120510, end: 20120510
  3. ACTEMRA [Suspect]
     Active Substance: TOCILIZUMAB
     Dosage: DRUG DOSE FIRST ADMINISTERED IS 300 MG MILLIGRAM(S)
     Route: 042
     Dates: start: 20120614, end: 20160318
  4. ACTEMRA [Suspect]
     Active Substance: TOCILIZUMAB
     Dosage: DRUG DOSE FIRST ADMINISTERED IS 400 MG MILLIGRAM(S)
     Route: 042
     Dates: start: 20160401, end: 20180309
  5. ACTEMRA [Suspect]
     Active Substance: TOCILIZUMAB
     Dosage: DRUG DOSE FIRST ADMINISTERED IS 435 MG MILLIGRAM(S)
     Route: 042
     Dates: start: 20180403, end: 20190312
  6. ACTEMRA [Suspect]
     Active Substance: TOCILIZUMAB
     Dosage: DRUG DOSE FIRST ADMINISTERED IS 440 MG MILLIGRAM(S)
     Route: 042
     Dates: start: 20190430, end: 20200331
  7. ACTEMRA [Suspect]
     Active Substance: TOCILIZUMAB
     Dosage: DRUG DOSE FIRST ADMINISTERED IS 472 MG MILLIGRAM(S)?MOREDOSAGEINFO IS B5031 28-FEB-2027
     Route: 042
     Dates: start: 20201014
  8. ACTEMRA [Suspect]
     Active Substance: TOCILIZUMAB
     Route: 042
  9. ACTEMRA [Suspect]
     Active Substance: TOCILIZUMAB
     Route: 042
  10. ACTEMRA [Suspect]
     Active Substance: TOCILIZUMAB
     Route: 042
  11. ACTEMRA [Suspect]
     Active Substance: TOCILIZUMAB
     Route: 042
  12. ACTEMRA [Suspect]
     Active Substance: TOCILIZUMAB
     Route: 042
  13. ACTEMRA ACTPEN [Suspect]
     Active Substance: TOCILIZUMAB
     Indication: Product used for unknown indication
     Route: 058
     Dates: start: 202004
  14. AMLODIPINE [Concomitant]
     Active Substance: AMLODIPINE BESYLATE
  15. Calcium tablets [Concomitant]
  16. CODEINE [Concomitant]
     Active Substance: CODEINE
  17. FOSINOPRIL [Concomitant]
     Active Substance: FOSINOPRIL
  18. INFANTOL [Concomitant]
  19. LANSOPRAZOLE [Concomitant]
     Active Substance: LANSOPRAZOLE
  20. METHYLPHENIDATE [Concomitant]
     Active Substance: METHYLPHENIDATE
  21. NAPROXEN [Concomitant]
     Active Substance: NAPROXEN
  22. TYLENOL [Concomitant]
     Active Substance: ACETAMINOPHEN
     Dosage: DRUG DOSE FIRST ADMINISTERED IS 650 MG MILLIGRAM(S)
     Route: 048
  23. ZOMETA [Concomitant]
     Active Substance: ZOLEDRONIC ACID

REACTIONS (1)
  - Weight increased [Unknown]
